FAERS Safety Report 13025953 (Version 1)
Quarter: 2016Q4

REPORT INFORMATION
  Report Type: Spontaneous
  Country: US (occurrence: US)
  Receive Date: 20161213
  Receipt Date: 20161213
  Transmission Date: 20170207
  Serious: Yes (Disabling)
  Sender: FDA-Public Use
  Company Number: None

PATIENT
  Age: 13 Year
  Sex: Male
  Weight: 54 kg

DRUGS (1)
  1. SULFAMETHOXAZOLE-TMP SS AUROBINDO PHARM [Suspect]
     Active Substance: SULFAMETHOXAZOLE\TRIMETHOPRIM
     Indication: IMPETIGO
     Dosage: ?          QUANTITY:10 TABLET(S);?
     Route: 048
     Dates: start: 20161209, end: 20161210

REACTIONS (4)
  - Headache [None]
  - Pyrexia [None]
  - Visual impairment [None]
  - Chills [None]

NARRATIVE: CASE EVENT DATE: 20161209
